FAERS Safety Report 21774680 (Version 1)
Quarter: 2022Q4

REPORT INFORMATION
  Report Type: Spontaneous
  Country: FR (occurrence: FR)
  Receive Date: 20221224
  Receipt Date: 20221224
  Transmission Date: 20230112
  Serious: Yes (Other)
  Sender: FDA-Public Use
  Company Number: None

PATIENT
  Age: 48 Year
  Sex: Female

DRUGS (4)
  1. TRISENOX [Suspect]
     Active Substance: ARSENIC TRIOXIDE
     Indication: Acute myeloid leukaemia
     Dosage: FROM D5 TO D14/ 25 DAYS , STRENGTH : 1 MG/ML , UNIT DOSE :  6.6 MG, DURATION : 9 DAYS
     Route: 065
     Dates: start: 20220901, end: 20220910
  2. IDARUBICIN HYDROCHLORIDE [Suspect]
     Active Substance: IDARUBICIN HYDROCHLORIDE
     Indication: Acute myeloid leukaemia
     Dosage: D1 AND D3 / 28 DAYS, UNIT DOSE :  16 MG, DURATION : 5 DAYS
     Route: 065
     Dates: start: 20220905, end: 20220910
  3. VALACYCLOVIR [Suspect]
     Active Substance: VALACYCLOVIR HYDROCHLORIDE
     Indication: Antiviral prophylaxis
     Dosage: UNIT DOSE :1000MG, FREQUENCY TIME : 1 DAY , DURATION : 4 DAYS
     Route: 065
     Dates: start: 20220906, end: 20220910
  4. POSACONAZOLE [Suspect]
     Active Substance: POSACONAZOLE
     Indication: Antifungal prophylaxis
     Dosage: UNIT DOSE :  300 MG, DURATION : 4 DAYS
     Route: 065
     Dates: start: 20220906, end: 20220910

REACTIONS (2)
  - Cholestasis [Recovered/Resolved]
  - Hepatic cytolysis [Recovered/Resolved]

NARRATIVE: CASE EVENT DATE: 20220910
